FAERS Safety Report 8281855-X (Version None)
Quarter: 2012Q2

REPORT INFORMATION
  Report Type: 
  Country: None (occurrence: None)
  Receive Date: 20120410
  Receipt Date: 20120405
  Transmission Date: 20120825
  Serious: Yes (Hospitalization)
  Sender: FDA-Public Use
  Company Number: ADR-2012-00650

PATIENT
  Sex: Male

DRUGS (2)
  1. LIORESAL [Suspect]
     Indication: SPINAL CORD INJURY
     Dosage: SEE IMAGE
  2. LIORESAL [Suspect]
     Indication: MUSCLE SPASTICITY
     Dosage: SEE IMAGE

REACTIONS (4)
  - SYRINGOMYELIA [None]
  - HALLUCINATION [None]
  - DRUG WITHDRAWAL SYNDROME [None]
  - DEVICE KINK [None]
